FAERS Safety Report 6653324-1 (Version None)
Quarter: 2010Q1

REPORT INFORMATION
  Report Type: 
  Country: None (occurrence: None)
  Receive Date: 20100326
  Receipt Date: 20100316
  Transmission Date: 20100710
  Serious: Yes (Death)
  Sender: FDA-Public Use
  Company Number: US-ROCHE-690191

PATIENT
  Sex: Female
  Weight: 89.8 kg

DRUGS (2)
  1. CAPECITABINE [Suspect]
     Indication: COLON CANCER
     Dosage: 7 DAYS ON, 7 DAYS OFF FOR FOUR CYCLES.
     Route: 048
     Dates: start: 20100105, end: 20100223
  2. AVASTIN [Concomitant]
     Indication: COLON CANCER
     Dosage: 7 DAYS ON, 7 DAYS OFF FOR FOUR CYCLES.
     Route: 042

REACTIONS (1)
  - MALIGNANT NEOPLASM PROGRESSION [None]
